FAERS Safety Report 9562785 (Version 1)
Quarter: 2013Q3

REPORT INFORMATION
  Report Type: Other
  Country: ES (occurrence: ES)
  Receive Date: 20130927
  Receipt Date: 20130927
  Transmission Date: 20140515
  Serious: Yes (Hospitalization)
  Sender: FDA-Public Use
  Company Number: ES-BRISTOL-MYERS SQUIBB COMPANY-19475227

PATIENT
  Age: 83 Year
  Sex: Male

DRUGS (1)
  1. MITOMYCIN-C [Suspect]
     Indication: BLADDER TRANSITIONAL CELL CARCINOMA
     Dosage: 40MG ONCE IN 1WK
     Route: 042

REACTIONS (2)
  - Hypersensitivity [Recovered/Resolved]
  - Genital ulceration [Recovered/Resolved]
